FAERS Safety Report 5951168-7 (Version None)
Quarter: 2008Q4

REPORT INFORMATION
  Report Type: 
  Country: None (occurrence: None)
  Receive Date: 20081112
  Receipt Date: 20081112
  Transmission Date: 20090506
  Serious: Yes (Hospitalization)
  Sender: FDA-Public Use
  Company Number: None

PATIENT
  Sex: Male
  Weight: 75.7507 kg

DRUGS (1)
  1. HUMIRA [Suspect]
     Indication: CROHN'S DISEASE
     Dosage: ONE QOW SQ
     Route: 058
     Dates: start: 20081008, end: 20081022

REACTIONS (5)
  - CHEST PAIN [None]
  - DIZZINESS [None]
  - FATIGUE [None]
  - PAIN IN JAW [None]
  - PARAESTHESIA [None]
